FAERS Safety Report 6621962-8 (Version None)
Quarter: 2010Q1

REPORT INFORMATION
  Report Type: 
  Country: None (occurrence: None)
  Receive Date: 20100223
  Receipt Date: 20100104
  Transmission Date: 20100710
  Serious: No
  Sender: FDA-Public Use
  Company Number: 003820

PATIENT
  Sex: Female

DRUGS (1)
  1. CIMZIA [Suspect]
     Indication: INFLAMMATORY BOWEL DISEASE
     Dosage: SUBCUTANEOUS
     Route: 058
     Dates: end: 20100101

REACTIONS (3)
  - DIARRHOEA [None]
  - OFF LABEL USE [None]
  - PYREXIA [None]
